FAERS Safety Report 7819963 (Version 5)
Quarter: 2013Q4

REPORT INFORMATION
  Report Type: Spontaneous
  Country: US (occurrence: US)
  Receive Date: 20110221
  Receipt Date: 20131118
  Transmission Date: 20140711
  Serious: Yes (Hospitalization, Other)
  Sender: FDA-Public Use
  Company Number: US-BAYER-2011-016041

PATIENT
  Age: 35 Year
  Sex: Female
  Weight: 60.77 kg

DRUGS (4)
  1. OCELLA [Suspect]
     Indication: ACNE
     Dosage: UNK
     Route: 048
     Dates: start: 2008, end: 2009
  2. OCELLA [Suspect]
     Indication: PREMENSTRUAL SYNDROME
  3. LIPITOR [Concomitant]
  4. WELLBUTRIN [Concomitant]

REACTIONS (3)
  - Cholecystitis chronic [None]
  - Gallbladder disorder [None]
  - Blood cholesterol increased [None]
